FAERS Safety Report 6662572-6 (Version None)
Quarter: 2010Q1

REPORT INFORMATION
  Report Type: 
  Country: None (occurrence: None)
  Receive Date: 20100329
  Receipt Date: 20100315
  Transmission Date: 20100710
  Serious: Yes (Other)
  Sender: FDA-Public Use
  Company Number: 230012J10CAN

PATIENT
  Age: 48 Year
  Sex: Female

DRUGS (20)
  1. REBIF [Suspect]
     Indication: MULTIPLE SCLEROSIS
     Dosage: SEE IMAGE
     Route: 058
     Dates: start: 20090901, end: 20090101
  2. REBIF [Suspect]
     Indication: MULTIPLE SCLEROSIS
     Dosage: SEE IMAGE
     Route: 058
     Dates: start: 19991118, end: 20090901
  3. REBIF [Suspect]
     Indication: MULTIPLE SCLEROSIS
     Dosage: SEE IMAGE
     Route: 058
     Dates: start: 20090101
  4. ZOCOR [Suspect]
     Indication: LIPIDS ABNORMAL
     Dosage: 20 MG, 1 IN 1 DAYS, ORAL
     Route: 048
     Dates: end: 20090615
  5. EVENING PRIMROSE OIL (OENOTHERA BIENNIS OIL) [Concomitant]
  6. VITAMIN E [Concomitant]
  7. CENTRUM MULTI-VITAMIN (CENTRUM /01536001/) [Concomitant]
  8. VITAMIN D [Concomitant]
  9. ASPIRIN [Concomitant]
  10. MAGNESIUM (MAGNESIUM) [Concomitant]
  11. LOVAZA [Concomitant]
  12. METFORMIN HCL [Concomitant]
  13. ZENLAFAXINE (VENLAFAXINE) (VENLAFAXINE) [Concomitant]
  14. RANITIDINE [Concomitant]
  15. AMITRIPTYLINE HYDROCHLORIDE [Concomitant]
  16. DIOVAN [Concomitant]
  17. PREDNISONE TAB [Concomitant]
  18. BENEDRYL (BENADRYL /01563701/) [Concomitant]
  19. GLYBURIDE [Concomitant]
  20. EZETIMIBE [Concomitant]

REACTIONS (8)
  - ALANINE AMINOTRANSFERASE INCREASED [None]
  - ANGIOEDEMA [None]
  - ASPARTATE AMINOTRANSFERASE INCREASED [None]
  - GAMMA-GLUTAMYLTRANSFERASE INCREASED [None]
  - HEPATIC STEATOSIS [None]
  - LENTIGO [None]
  - MULTIPLE SCLEROSIS RELAPSE [None]
  - URTICARIA [None]
